FAERS Safety Report 7340743-3 (Version None)
Quarter: 2011Q1

REPORT INFORMATION
  Report Type: 
  Country: None (occurrence: None)
  Receive Date: 20110228
  Receipt Date: 20110214
  Transmission Date: 20110831
  Serious: Yes (Death, Hospitalization, Other)
  Sender: FDA-Public Use
  Company Number: 011990

PATIENT
  Age: 49 Year
  Sex: Male

DRUGS (33)
  1. METOPROLOL (METOPROLOL) [Concomitant]
  2. SENNA (SENNA) [Concomitant]
  3. PANTOPRAZOLE [Concomitant]
  4. GUAIFENESIN DM (DEXTROMETHORPHAN HYDROBROMIDE, GUAIFENESIN) [Concomitant]
  5. LORAZEPAM [Concomitant]
  6. AMIODARONE (AMIODARONE) [Concomitant]
  7. CEFEPIME [Concomitant]
  8. DILTIAZEM [Concomitant]
  9. URSODIOL [Concomitant]
  10. INSULIN GLARGINE (INSULIN GLARGINE) [Concomitant]
  11. DIPHENHYDRAMINE (DIPHENHYDRAMINE) [Concomitant]
  12. LANSOPRAZOLE [Concomitant]
  13. VORICONAZOLE [Concomitant]
  14. CYCLOPHOSPHAMIDE [Concomitant]
  15. ACETAMINOPHEN [Concomitant]
  16. MORPHINE [Concomitant]
  17. AZITHROMYCIN [Concomitant]
  18. BUSULFAN [Suspect]
     Indication: STEM CELL TRANSPLANT
     Dosage: (68 MG, DAILY DOSE, INTRAVENOUS) (313 MG, DAILY DOSE, INTRAVENOUS)
     Route: 042
     Dates: start: 20100923, end: 20100923
  19. BUSULFAN [Suspect]
     Indication: STEM CELL TRANSPLANT
     Dosage: (68 MG, DAILY DOSE, INTRAVENOUS) (313 MG, DAILY DOSE, INTRAVENOUS)
     Route: 042
     Dates: start: 20100929, end: 20101002
  20. ACYCLOVIR [Concomitant]
  21. FLUCONAZOLE [Concomitant]
  22. BUMETANIDE [Concomitant]
  23. MEROPENEM [Concomitant]
  24. ETOPOSIDE [Concomitant]
  25. ALPRAZOLAM [Concomitant]
  26. VANCOMYCIN [Concomitant]
  27. METRONIDAZOLE [Concomitant]
  28. ALUMINUM HYDROXIDE AND MAGNESIUM TRISILICATE [Concomitant]
  29. TRAZODONE (TRAZODONE) [Concomitant]
  30. FENTANYL [Concomitant]
  31. CLINDAMYCIN [Concomitant]
  32. DOCUSATE (DOCUSATE) [Concomitant]
  33. LOPERAMIDE [Concomitant]

REACTIONS (19)
  - ACUTE RESPIRATORY FAILURE [None]
  - HYPOXIA [None]
  - TACHYCARDIA [None]
  - BK VIRUS INFECTION [None]
  - CYTOMEGALOVIRUS VIRAEMIA [None]
  - ACUTE RESPIRATORY DISTRESS SYNDROME [None]
  - SEPTIC SHOCK [None]
  - ABDOMINAL DISTENSION [None]
  - CLOSTRIDIUM DIFFICILE COLITIS [None]
  - TACHYPNOEA [None]
  - NO THERAPEUTIC RESPONSE [None]
  - VIRAEMIA [None]
  - PULMONARY ALVEOLAR HAEMORRHAGE [None]
  - LUNG INFILTRATION [None]
  - PNEUMONIA CYTOMEGALOVIRAL [None]
  - MECHANICAL VENTILATION COMPLICATION [None]
  - FEBRILE NEUTROPENIA [None]
  - CYSTITIS VIRAL [None]
  - CYSTITIS HAEMORRHAGIC [None]
